FAERS Safety Report 24841236 (Version 5)
Quarter: 2025Q2

REPORT INFORMATION
  Report Type: Report from Study
  Country: US (occurrence: US)
  Receive Date: 20250114
  Receipt Date: 20250508
  Transmission Date: 20250717
  Serious: Yes (Death, Hospitalization)
  Sender: BAUSCH AND LOMB
  Company Number: US-BAUSCH-BL-2025-000478

PATIENT
  Age: 56 Year
  Sex: Female

DRUGS (2)
  1. XIFAXAN [Suspect]
     Active Substance: RIFAXIMIN
     Indication: Hepatic cirrhosis
     Route: 048
     Dates: start: 202412
  2. XIFAXAN [Suspect]
     Active Substance: RIFAXIMIN
     Dosage: ONE TABLET / TWO TIMES A DAY
     Route: 048

REACTIONS (7)
  - Renal failure [Fatal]
  - Hepatic failure [Fatal]
  - Hepatic cirrhosis [Not Recovered/Not Resolved]
  - Condition aggravated [Not Recovered/Not Resolved]
  - Ammonia increased [Recovered/Resolved]
  - Inability to afford medication [Unknown]
  - Therapy interrupted [Unknown]
